FAERS Safety Report 7964450-9 (Version None)
Quarter: 2011Q4

REPORT INFORMATION
  Report Type: 
  Country: None (occurrence: None)
  Receive Date: 20111208
  Receipt Date: 20111130
  Transmission Date: 20120403
  Serious: Yes (Hospitalization, Other)
  Sender: FDA-Public Use
  Company Number: MX-SANOFI-AVENTIS-2011SA079392

PATIENT
  Age: 86 Year
  Sex: Male
  Weight: 73 kg

DRUGS (6)
  1. ALL OTHER THERAPEUTIC PRODUCTS [Concomitant]
     Route: 065
     Dates: start: 20110201, end: 20110701
  2. ALL OTHER THERAPEUTIC PRODUCTS [Concomitant]
     Indication: HEPATITIS A
     Route: 065
     Dates: start: 20110201, end: 20110701
  3. PLAVIX [Suspect]
     Indication: THROMBOSIS PROPHYLAXIS
     Route: 048
     Dates: start: 20080101, end: 20110601
  4. PLAVIX [Suspect]
     Route: 048
     Dates: start: 20080101, end: 20110601
  5. METFORMIN HCL [Concomitant]
     Indication: TYPE 2 DIABETES MELLITUS
     Route: 048
     Dates: start: 19990101
  6. AVAPRO [Concomitant]
     Route: 048
     Dates: start: 19990101

REACTIONS (3)
  - HEPATITIS A [None]
  - PNEUMONIA BACTERIAL [None]
  - INTERVERTEBRAL DISC SPACE NARROWING [None]
